FAERS Safety Report 8122566-0 (Version None)
Quarter: 2012Q1

REPORT INFORMATION
  Report Type: 
  Country: None (occurrence: None)
  Receive Date: 20120207
  Receipt Date: 20120207
  Transmission Date: 20120608
  Serious: Yes (Hospitalization)
  Sender: FDA-Public Use
  Company Number: None

PATIENT
  Age: 55 Year
  Sex: Male
  Weight: 65.5901 kg

DRUGS (6)
  1. OXYCONTIN [Concomitant]
  2. CYCLOBENZAPRINE [Concomitant]
  3. OXYCODONE HCL [Concomitant]
  4. REGLAN [Concomitant]
  5. LISINOPRIL [Concomitant]
  6. LINIFANIB [Suspect]
     Dosage: ORAL, 12.5MG DAILY
     Route: 048
     Dates: start: 20110728, end: 20111102

REACTIONS (10)
  - ABDOMINAL DISTENSION [None]
  - PAIN [None]
  - ABDOMINAL PAIN [None]
  - SWELLING [None]
  - HEPATIC LESION [None]
  - COLON CANCER METASTATIC [None]
  - NEOPLASM PROGRESSION [None]
  - HAEMATEMESIS [None]
  - ASCITES [None]
  - NAUSEA [None]
